FAERS Safety Report 24066270 (Version 2)
Quarter: 2024Q3

REPORT INFORMATION
  Report Type: Spontaneous
  Country: GB (occurrence: GB)
  Receive Date: 20240709
  Receipt Date: 20240805
  Transmission Date: 20241017
  Serious: Yes (Other)
  Sender: SANDOZ
  Company Number: None

PATIENT
  Sex: Male

DRUGS (1)
  1. MONTELUKAST [Suspect]
     Active Substance: MONTELUKAST SODIUM
     Indication: Product used for unknown indication
     Dosage: UNK
     Route: 065

REACTIONS (6)
  - Hypotension [Recovered/Resolved]
  - Aggression [Unknown]
  - Anger [Recovering/Resolving]
  - Panic attack [Unknown]
  - Somnolence [Unknown]
  - Anxiety [Recovered/Resolved]
